FAERS Safety Report 5820388-4 (Version None)
Quarter: 2008Q3

REPORT INFORMATION
  Report Type: 
  Country: None (occurrence: None)
  Receive Date: 20080724
  Receipt Date: 20070628
  Transmission Date: 20090109
  Serious: No
  Sender: FDA-Public Use
  Company Number: A0659673A

PATIENT
  Age: 58 Year
  Sex: Male

DRUGS (5)
  1. AVANDIA [Suspect]
     Dosage: 4MG PER DAY
     Route: 048
     Dates: start: 20070401
  2. JANUVIA [Suspect]
  3. ACCUPRIL [Concomitant]
  4. DIOVAN HCT [Concomitant]
  5. OTC PRODUCTS [Concomitant]

REACTIONS (3)
  - FUNGAL INFECTION [None]
  - GENITAL RASH [None]
  - PRURITUS [None]
